FAERS Safety Report 6245615-3 (Version None)
Quarter: 2009Q2

REPORT INFORMATION
  Report Type: 
  Country: None (occurrence: None)
  Receive Date: 20090625
  Receipt Date: 20090615
  Transmission Date: 20091009
  Serious: Yes (Death)
  Sender: FDA-Public Use
  Company Number: JP-SANOFI-SYNTHELABO-A01200906424

PATIENT
  Age: 62 Year
  Sex: Male

DRUGS (6)
  1. MYSLEE [Suspect]
     Indication: DRUG USE FOR UNKNOWN INDICATION
     Dosage: 5 MG
     Route: 048
     Dates: start: 20090415
  2. DOGMATYL [Suspect]
     Indication: DEPRESSION
     Dosage: 150 MG
     Route: 048
     Dates: start: 20090415, end: 20090512
  3. DOGMATYL [Suspect]
     Dosage: 100 MG
     Route: 048
     Dates: start: 20090513, end: 20090605
  4. DOGMATYL [Suspect]
     Dosage: 50 MG
     Route: 048
     Dates: start: 20090606
  5. ABILIFY [Suspect]
     Indication: DRUG USE FOR UNKNOWN INDICATION
     Dosage: 3 MG
     Route: 048
     Dates: start: 20090513, end: 20090605
  6. ABILIFY [Suspect]
     Dosage: 6 MG
     Route: 048
     Dates: start: 20090606

REACTIONS (1)
  - COMPLETED SUICIDE [None]
